FAERS Safety Report 8431117-2 (Version None)
Quarter: 2012Q2

REPORT INFORMATION
  Report Type: 
  Country: None (occurrence: None)
  Receive Date: 20120612
  Receipt Date: 20120605
  Transmission Date: 20120825
  Serious: Yes (Other)
  Sender: FDA-Public Use
  Company Number: JP-MERCK-1206USA01315

PATIENT
  Age: 75 Year
  Sex: Female

DRUGS (7)
  1. LOXONIN [Concomitant]
     Route: 065
  2. EVISTA [Concomitant]
     Indication: OSTEOPOROSIS
     Route: 048
     Dates: start: 20120401
  3. PREDNISOLONE [Concomitant]
     Indication: MUSCULOSKELETAL PAIN
     Route: 048
  4. METHOTREXATE [Concomitant]
     Route: 048
  5. FOSAMAX [Suspect]
     Route: 048
     Dates: start: 20031001, end: 20090301
  6. FOLIAMIN [Concomitant]
     Route: 065
  7. FOSAMAX [Suspect]
     Indication: OSTEOPOROSIS
     Route: 048
     Dates: start: 20110228, end: 20120123

REACTIONS (1)
  - OSTEOMYELITIS [None]
